FAERS Safety Report 20288817 (Version 1)
Quarter: 2022Q1

REPORT INFORMATION
  Report Type: Spontaneous
  Country: GB (occurrence: GB)
  Receive Date: 20220104
  Receipt Date: 20220104
  Transmission Date: 20220424
  Serious: Yes (Death, Hospitalization)
  Sender: FDA-Public Use
  Company Number: None

PATIENT
  Age: 11 Year
  Sex: Male
  Weight: 53 kg

DRUGS (4)
  1. MYCOPHENOLATE MOFETIL [Suspect]
     Active Substance: MYCOPHENOLATE MOFETIL
     Indication: Graft versus host disease
     Dosage: UNK
     Route: 065
  2. NOMACOPAN [Suspect]
     Active Substance: NOMACOPAN
     Indication: Thrombotic microangiopathy
     Dosage: 16 MILLIGRAM
     Route: 058
     Dates: start: 20210826, end: 20211021
  3. PREDNISOLONE [Suspect]
     Active Substance: PREDNISOLONE
     Indication: Graft versus host disease
     Dosage: 400 MICROGRAM/KILOGRAM
     Route: 065
     Dates: start: 20211001
  4. PENTAMIDINE [Concomitant]
     Active Substance: PENTAMIDINE
     Indication: Prophylaxis
     Dosage: UNK
     Route: 065

REACTIONS (3)
  - Respiratory syncytial virus infection [Fatal]
  - Respiratory failure [Fatal]
  - Infection [Unknown]

NARRATIVE: CASE EVENT DATE: 20211019
